FAERS Safety Report 10924863 (Version 2)
Quarter: 2015Q2

REPORT INFORMATION
  Report Type: Spontaneous
  Country: US (occurrence: US)
  Receive Date: 20150318
  Receipt Date: 20150524
  Transmission Date: 20150821
  Serious: No
  Sender: FDA-Public Use
  Company Number: US-JNJFOC-20130809345

PATIENT
  Age: 76 Year
  Sex: Female
  Weight: 43.09 kg

DRUGS (5)
  1. KETOCONAZOLE. [Suspect]
     Active Substance: KETOCONAZOLE
     Route: 061
  2. LIPITOR [Concomitant]
     Active Substance: ATORVASTATIN CALCIUM
     Indication: BLOOD CHOLESTEROL
     Dosage: SINCE 25 YEARS AGO
     Route: 048
  3. KETOCONAZOLE. [Suspect]
     Active Substance: KETOCONAZOLE
     Indication: DANDRUFF
     Dosage: ONE APPLICATION
     Route: 061
     Dates: start: 201308
  4. MAGNESIUM [Concomitant]
     Active Substance: MAGNESIUM
     Indication: CALCIUM METABOLISM DISORDER
     Dosage: SINCE 25 YEARS AGO, AT NIGHT
     Route: 048
  5. CITRACAL [Concomitant]
     Active Substance: CALCIUM CITRATE
     Indication: BONE DISORDER
     Dosage: SINCE 25 YEARS AGO
     Route: 048

REACTIONS (3)
  - Dry skin [Not Recovered/Not Resolved]
  - Pain of skin [Not Recovered/Not Resolved]
  - Alopecia [Not Recovered/Not Resolved]

NARRATIVE: CASE EVENT DATE: 201308
